FAERS Safety Report 18986094 (Version 2)
Quarter: 2021Q2

REPORT INFORMATION
  Report Type: Spontaneous
  Country: JP (occurrence: JP)
  Receive Date: 20210309
  Receipt Date: 20210406
  Transmission Date: 20210717
  Serious: Yes (Death, Hospitalization)
  Sender: FDA-Public Use
  Company Number: JP-BAYER-2021-093636

PATIENT
  Age: 33 Year
  Sex: Male
  Weight: 60 kg

DRUGS (11)
  1. ADEMPAS [Suspect]
     Active Substance: RIOCIGUAT
     Indication: PULMONARY ARTERIAL HYPERTENSION
     Dosage: GASTRIC TUBE, DAILY DOSE 3 MG
     Dates: start: 20201205, end: 20201210
  2. RED BLOOD CELLS [Concomitant]
     Active Substance: HUMAN RED BLOOD CELL
  3. YOKUKANSAN [Concomitant]
     Active Substance: HERBALS
     Dosage: DAILY DOSE 7.5 G
     Dates: start: 20201218, end: 20210114
  4. FLOLAN [Concomitant]
     Active Substance: EPOPROSTENOL SODIUM
     Dosage: UNK
     Dates: start: 20201207, end: 20210105
  5. TRACLEER [Concomitant]
     Active Substance: BOSENTAN
     Dosage: DAILY DOSE 125 MG
     Dates: start: 20201203, end: 20201225
  6. DAIKENCHUTO [Concomitant]
     Active Substance: HERBALS
     Dosage: DAILY DOSE 7.5 G
     Dates: start: 20201212, end: 20201219
  7. ADEMPAS [Suspect]
     Active Substance: RIOCIGUAT
     Indication: PULMONARY ARTERIAL HYPERTENSION
     Dosage: GASTRIC TUBE, DAILY DOSE 6 MG
     Dates: start: 20201225, end: 20210120
  8. BERAPROST NA [Concomitant]
     Active Substance: BERAPROST SODIUM
     Dosage: DAILY DOSE 60 ?G
     Dates: start: 20201203, end: 20201213
  9. REBAMIPIDE [Concomitant]
     Active Substance: REBAMIPIDE
     Dosage: DAILY DOSE 300 MG
     Dates: start: 20201218, end: 20210120
  10. ADEMPAS [Suspect]
     Active Substance: RIOCIGUAT
     Indication: PULMONARY ARTERIAL HYPERTENSION
     Dosage: GASTRIC TUBE, DAILY DOSE 4.5 MG
     Dates: start: 20201211, end: 20201224
  11. MIYA?BM [Concomitant]
     Active Substance: CLOSTRIDIUM BUTYRICUM SPORES STRAIN M-55
     Dosage: DAILY DOSE 3 MG
     Dates: start: 20201212, end: 20201224

REACTIONS (9)
  - Metastasis [None]
  - Lymphangiosis carcinomatosa [None]
  - Off label use [None]
  - Gastric cancer stage IV [Fatal]
  - Faeces discoloured [None]
  - Gastrointestinal haemorrhage [None]
  - Incorrect route of product administration [None]
  - Haematochezia [None]
  - General physical health deterioration [None]

NARRATIVE: CASE EVENT DATE: 20201218
